FAERS Safety Report 8394531-X (Version None)
Quarter: 2012Q2

REPORT INFORMATION
  Report Type: 
  Country: None (occurrence: None)
  Receive Date: 20120530
  Receipt Date: 20120525
  Transmission Date: 20120825
  Serious: Yes (Other)
  Sender: FDA-Public Use
  Company Number: PHHY2012TW042324

PATIENT
  Age: 73 Year
  Sex: Female

DRUGS (1)
  1. ZOLEDRONOC ACID [Suspect]
     Dosage: 5 MG, UNK
     Route: 042
     Dates: start: 20120515

REACTIONS (5)
  - DYSSTASIA [None]
  - PYREXIA [None]
  - SWELLING [None]
  - ERYTHEMA [None]
  - SPINAL PAIN [None]
